FAERS Safety Report 12493611 (Version 1)
Quarter: 2016Q2

REPORT INFORMATION
  Report Type: Spontaneous
  Country: BR (occurrence: BR)
  Receive Date: 20160623
  Receipt Date: 20160623
  Transmission Date: 20160815
  Serious: Yes (Other)
  Sender: FDA-Public Use
  Company Number: BR-REGENERON PHARMACEUTICALS, INC.-2016-18571

PATIENT

DRUGS (1)
  1. EYLEA [Suspect]
     Active Substance: AFLIBERCEPT
     Indication: PRODUCT USED FOR UNKNOWN INDICATION
     Dosage: TOTAL NUMBER OF EYLIA INJECTIONS PRIOR TO EVENT ONSET WAS NOT REPORTED.
     Route: 031
     Dates: start: 20160527, end: 20160527

REACTIONS (3)
  - Uveitis [Recovered/Resolved]
  - Multiple use of single-use product [Recovered/Resolved]
  - Retinal haemorrhage [Unknown]

NARRATIVE: CASE EVENT DATE: 20160527
